FAERS Safety Report 7686160-8 (Version None)
Quarter: 2011Q3

REPORT INFORMATION
  Report Type: 
  Country: None (occurrence: None)
  Receive Date: 20110816
  Receipt Date: 20110803
  Transmission Date: 20111222
  Serious: Yes (Hospitalization)
  Sender: FDA-Public Use
  Company Number: BE-UCBSA-036641

PATIENT
  Sex: Male

DRUGS (8)
  1. VOLTAREN [Concomitant]
     Indication: PAIN
     Route: 042
     Dates: start: 20110701, end: 20110701
  2. ACETAMINOPHEN [Concomitant]
     Indication: PAIN
     Route: 042
     Dates: start: 20110630, end: 20110630
  3. TRAMADOL HCL [Concomitant]
     Indication: PAIN
     Dosage: 50 MG ONCE DAILY, 100 MG ONCE DAILY
     Route: 048
     Dates: start: 20110701, end: 20110701
  4. CERTOLIZUMAB PEGOL [Suspect]
     Indication: CROHN'S DISEASE
     Dosage: C870-085:400 MG EVERY TWO WEEK,C870-088:400 MG EVERY TWO WEEK FOR INITIAL 3 DOSE
     Route: 058
     Dates: start: 20080829
  5. PIRITRAMIDE [Concomitant]
     Indication: SEDATION
     Route: 042
     Dates: start: 20110630, end: 20110630
  6. PIRITRAMIDE [Concomitant]
     Route: 042
     Dates: start: 20110707, end: 20110707
  7. ALIZAPRIDE [Concomitant]
     Indication: NAUSEA
     Route: 042
     Dates: start: 20110630, end: 20110630
  8. KETOROLAC TROMETHAMINE [Concomitant]
     Indication: PAIN
     Route: 042
     Dates: start: 20110630, end: 20110630

REACTIONS (2)
  - CALCULUS URINARY [None]
  - RENAL COLIC [None]
